FAERS Safety Report 25517510 (Version 1)
Quarter: 2025Q3

REPORT INFORMATION
  Report Type: Other
  Country: AU (occurrence: AU)
  Receive Date: 20250704
  Receipt Date: 20250704
  Transmission Date: 20251021
  Serious: Yes (Hospitalization, Other)
  Sender: ANI
  Company Number: AU-ANIPHARMA-023376

PATIENT
  Age: 49 Year
  Sex: Male

DRUGS (10)
  1. FLUVOXAMINE [Suspect]
     Active Substance: FLUVOXAMINE
     Indication: Delusional disorder, erotomanic type
  2. OLANZAPINE [Concomitant]
     Active Substance: OLANZAPINE
     Indication: Delusional disorder, erotomanic type
  3. CLOZAPINE [Concomitant]
     Active Substance: CLOZAPINE
     Indication: Delusional disorder, erotomanic type
  4. FLUVOXAMINE [Suspect]
     Active Substance: FLUVOXAMINE
     Indication: Delusional disorder, erotomanic type
  5. FLUVOXAMINE [Suspect]
     Active Substance: FLUVOXAMINE
     Indication: Delusional disorder, persecutory type
  6. FLUVOXAMINE [Suspect]
     Active Substance: FLUVOXAMINE
     Indication: Delusional disorder, persecutory type
  7. OLANZAPINE [Concomitant]
     Active Substance: OLANZAPINE
     Indication: Delusional disorder, persecutory type
  8. OLANZAPINE [Concomitant]
     Active Substance: OLANZAPINE
     Indication: Delusional disorder, erotomanic type
  9. OLANZAPINE [Concomitant]
     Active Substance: OLANZAPINE
     Indication: Delusional disorder, persecutory type
  10. CLOZAPINE [Concomitant]
     Active Substance: CLOZAPINE
     Indication: Delusional disorder, persecutory type

REACTIONS (1)
  - Pulmonary embolism [Recovered/Resolved]
